FAERS Safety Report 13058199 (Version 1)
Quarter: 2016Q4

REPORT INFORMATION
  Report Type: Spontaneous
  Country: JP (occurrence: JP)
  Receive Date: 20161223
  Receipt Date: 20161223
  Transmission Date: 20170207
  Serious: Yes (Hospitalization, Other)
  Sender: FDA-Public Use
  Company Number: JP-AMGEN-JPNSP2016118070

PATIENT
  Age: 44 Year
  Sex: Female
  Weight: 48 kg

DRUGS (33)
  1. G-LASTA [Suspect]
     Active Substance: PEGFILGRASTIM
     Indication: COLONY STIMULATING FACTOR PROPHYLAXIS
     Dosage: 3.6 MG, 1X/3WEEKS
     Route: 058
     Dates: start: 20150620, end: 20150808
  2. MARZULENE-S [Concomitant]
     Active Substance: SODIUM GUALENATE
     Indication: PROPHYLAXIS OF NAUSEA AND VOMITING
     Dosage: 6 G, TID
     Route: 048
     Dates: start: 20150619, end: 20150716
  3. DECADRON [Concomitant]
     Active Substance: DEXAMETHASONE
     Dosage: 2 MG, BID
     Route: 048
     Dates: start: 20150712, end: 20150712
  4. NEO MINOPHAGEN C                   /00467202/ [Concomitant]
     Indication: ECZEMA
     Dosage: 20 ML, QD
     Route: 042
     Dates: start: 20150718, end: 20150718
  5. NOVAMIN                            /00013301/ [Concomitant]
     Active Substance: PROCHLORPERAZINE MALEATE
     Indication: PROPHYLAXIS OF NAUSEA AND VOMITING
     Dosage: 5 MG, TID
     Route: 048
     Dates: start: 20150805, end: 20150904
  6. DECADRON [Concomitant]
     Active Substance: DEXAMETHASONE
     Indication: PROPHYLAXIS OF NAUSEA AND VOMITING
     Dosage: 4 MG, BID
     Route: 048
     Dates: start: 20150620, end: 20150622
  7. DECADRON [Concomitant]
     Active Substance: DEXAMETHASONE
     Dosage: 0.5 MG, BID
     Route: 048
     Dates: start: 20150715, end: 20150716
  8. EMEND [Concomitant]
     Active Substance: APREPITANT
     Indication: PROPHYLAXIS OF NAUSEA AND VOMITING
     Dosage: 125 MG, QD
     Route: 048
     Dates: start: 20150805, end: 20150829
  9. DECADRON [Concomitant]
     Active Substance: DEXAMETHASONE
     Dosage: 0.5 MG, QD
     Route: 048
     Dates: start: 20150717, end: 20150718
  10. MAGMITT [Concomitant]
     Active Substance: MAGNESIUM OXIDE
     Indication: CONSTIPATION
     Dosage: 330 MG, TID
     Route: 048
     Dates: start: 20150619, end: 20150723
  11. G-LASTA [Suspect]
     Active Substance: PEGFILGRASTIM
     Dosage: UNK
     Route: 058
     Dates: start: 20150926
  12. 5-FU [Suspect]
     Active Substance: FLUOROURACIL
     Indication: BREAST CANCER
     Dosage: 725 MG, 1X/3WEEKS
     Route: 041
     Dates: start: 20150805, end: 20150805
  13. KYTRIL [Concomitant]
     Active Substance: GRANISETRON HYDROCHLORIDE
     Indication: PROPHYLAXIS OF NAUSEA AND VOMITING
     Dosage: 3 MG, 1X/3WEEKS
     Route: 041
     Dates: start: 20150619, end: 20150710
  14. DEXART [Concomitant]
     Active Substance: DEXAMETHASONE SODIUM PHOSPHATE
     Indication: PROPHYLAXIS OF NAUSEA AND VOMITING
     Dosage: 13.2 MG, 1X/3WEEKS
     Route: 042
     Dates: start: 20150619, end: 20150710
  15. DEXART [Concomitant]
     Active Substance: DEXAMETHASONE SODIUM PHOSPHATE
     Dosage: 9.9 MG, 1X/3WEEKS
     Route: 042
     Dates: start: 20150805, end: 20150829
  16. DECADRON [Concomitant]
     Active Substance: DEXAMETHASONE
     Dosage: 1 MG, BID
     Route: 048
     Dates: start: 20150713, end: 20150714
  17. ATARAX-P                           /00058402/ [Concomitant]
     Active Substance: HYDROXYZINE HYDROCHLORIDE
     Indication: ECZEMA
     Dosage: 25 MG, TID
     Route: 048
     Dates: start: 20150718, end: 20150731
  18. ALOXI [Concomitant]
     Active Substance: PALONOSETRON HYDROCHLORIDE
     Indication: PROPHYLAXIS OF NAUSEA AND VOMITING
     Dosage: 0.75 MG, 1X/3WEEKS
     Route: 042
     Dates: start: 20150805, end: 20150829
  19. 5-FU [Suspect]
     Active Substance: FLUOROURACIL
     Dosage: 700 MG, 1X/3WEEKS
     Route: 041
     Dates: start: 20150829, end: 20150829
  20. EPIRUBICIN HYDROCHLORIDE. [Suspect]
     Active Substance: EPIRUBICIN HYDROCHLORIDE
     Indication: BREAST CANCER
     Dosage: 147 MG, 1X/3WEEKS
     Route: 041
     Dates: start: 20150805, end: 20150805
  21. EPIRUBICIN HYDROCHLORIDE. [Suspect]
     Active Substance: EPIRUBICIN HYDROCHLORIDE
     Dosage: 120 MG, 1X/3WEEKS
     Route: 041
     Dates: start: 20150829, end: 20150829
  22. FAMOTIDINE. [Concomitant]
     Active Substance: FAMOTIDINE
     Indication: PROPHYLAXIS OF NAUSEA AND VOMITING
     Dosage: 20 MG, BID
     Route: 048
     Dates: start: 20150619, end: 20150723
  23. PANTETHINE [Concomitant]
     Active Substance: PANTETHINE
     Indication: CONSTIPATION
     Dosage: 100 MG, TID
     Route: 048
     Dates: start: 20150619, end: 20150723
  24. MYSER                              /00115501/ [Concomitant]
     Active Substance: CYCLOSERINE
     Indication: ECZEMA
     Dosage: UNK, SEVERAL TIMES
     Route: 061
     Dates: start: 20150718, end: 20150718
  25. EMEND [Concomitant]
     Active Substance: APREPITANT
     Dosage: 80 MG, QD
     Route: 048
     Dates: start: 20150806, end: 20150831
  26. ENDOXAN                            /00021101/ [Suspect]
     Active Substance: CYCLOPHOSPHAMIDE
     Dosage: 700 MG, 1X/3WEEKS
     Route: 041
     Dates: start: 20150805, end: 20150829
  27. LAFUTIDINE [Concomitant]
     Active Substance: LAFUTIDINE
     Indication: PROPHYLAXIS OF NAUSEA AND VOMITING
     Dosage: 10 MG, BID
     Route: 048
     Dates: start: 20150805, end: 20150904
  28. ENDOXAN                            /00021101/ [Suspect]
     Active Substance: CYCLOPHOSPHAMIDE
     Indication: BREAST CANCER
     Dosage: 900 MG, Q3WK
     Route: 041
     Dates: start: 20150619, end: 20150710
  29. TAXOTERE [Concomitant]
     Active Substance: DOCETAXEL
     Indication: BREAST CANCER
     Dosage: 110 MG, 1X/3WEEKS
     Route: 041
     Dates: start: 20150619, end: 20150710
  30. LOXOPROFEN SODIUM HYDRATE [Concomitant]
     Active Substance: LOXOPROFEN SODIUM DIHYDRATE
     Indication: ARTHRALGIA
     Dosage: 60 MG, TID
     Route: 048
     Dates: start: 20150619, end: 20150716
  31. DECADRON [Concomitant]
     Active Substance: DEXAMETHASONE
     Dosage: 4 MG, BID
     Route: 048
     Dates: start: 20150711, end: 20150711
  32. DECADRON [Concomitant]
     Active Substance: DEXAMETHASONE
     Dosage: 2 MG, BID
     Route: 048
     Dates: start: 20150806, end: 20150901
  33. ANTEBATE [Concomitant]
     Active Substance: BETAMETHASONE DIPROPIONATE
     Indication: ECZEMA
     Dosage: UNK, BID
     Route: 061
     Dates: start: 20150718, end: 20150718

REACTIONS (2)
  - Wound infection [Recovering/Resolving]
  - Impaired healing [Recovering/Resolving]

NARRATIVE: CASE EVENT DATE: 20150824
